FAERS Safety Report 16751649 (Version 1)
Quarter: 2019Q3

REPORT INFORMATION
  Report Type: Spontaneous
  Country: ES (occurrence: ES)
  Receive Date: 20190828
  Receipt Date: 20190828
  Transmission Date: 20191005
  Serious: Yes (Hospitalization)
  Sender: FDA-Public Use
  Company Number: ES-TEVA-2019-ES-1097740

PATIENT
  Age: 49 Year
  Sex: Male

DRUGS (2)
  1. PACLITAXEL (2698A) [Suspect]
     Active Substance: PACLITAXEL
     Dates: start: 20190218
  2. CARBOPLATINO (2323A) [Suspect]
     Active Substance: CARBOPLATIN
     Dates: start: 20190218

REACTIONS (1)
  - Febrile neutropenia [Recovered/Resolved]

NARRATIVE: CASE EVENT DATE: 20190429
